FAERS Safety Report 24367096 (Version 1)
Quarter: 2024Q3

REPORT INFORMATION
  Report Type: Report from Study
  Country: CA (occurrence: CA)
  Receive Date: 20240926
  Receipt Date: 20240926
  Transmission Date: 20241016
  Serious: Yes (Other)
  Sender: DR REDDYS
  Company Number: CA-DRL-USA-CLI/CAN/24/0013876

PATIENT
  Age: 70 Year
  Sex: Male

DRUGS (2)
  1. ZOLEDRONIC ACID [Suspect]
     Active Substance: ZOLEDRONIC ACID
     Indication: Osteoporosis
     Dosage: STRENGTH: 5MG/100ML
     Route: 065
     Dates: start: 20180614
  2. ZOLEDRONIC ACID [Suspect]
     Active Substance: ZOLEDRONIC ACID
     Dosage: STRENGTH: 5MG/100ML
     Route: 065
     Dates: start: 20190919

REACTIONS (4)
  - Spinal fracture [Unknown]
  - Hip fracture [Unknown]
  - Femur fracture [Unknown]
  - Incorrect route of product administration [Unknown]
